FAERS Safety Report 8536132-6 (Version None)
Quarter: 2012Q3

REPORT INFORMATION
  Report Type: 
  Country: None (occurrence: None)
  Receive Date: 20120725
  Receipt Date: 20120718
  Transmission Date: 20120928
  Serious: Yes (Hospitalization)
  Sender: FDA-Public Use
  Company Number: CN-ASTELLAS-2012US006350

PATIENT
  Age: 72 Year
  Sex: Female
  Weight: 60 kg

DRUGS (1)
  1. TARCEVA [Suspect]
     Indication: NON-SMALL CELL LUNG CANCER
     Dosage: 150 MG, UID/QD
     Route: 048
     Dates: start: 20120301, end: 20120601

REACTIONS (4)
  - HYDROTHORAX [None]
  - HAIR GROWTH ABNORMAL [None]
  - RASH [None]
  - PRODUCT COUNTERFEIT [None]
